FAERS Safety Report 26200385 (Version 1)
Quarter: 2025Q4

REPORT INFORMATION
  Report Type: Report from Study
  Country: US (occurrence: US)
  Receive Date: 20251225
  Receipt Date: 20251225
  Transmission Date: 20260117
  Serious: Yes (Other)
  Sender: SERVIER
  Company Number: US-SERVIER-S25018584

PATIENT

DRUGS (1)
  1. VORASIDENIB [Suspect]
     Active Substance: VORASIDENIB
     Indication: Brain neoplasm malignant
     Dosage: 40 MG, QD
     Route: 048
     Dates: start: 20250809

REACTIONS (3)
  - Partial seizures [Recovered/Resolved]
  - Hepatic enzyme increased [Recovering/Resolving]
  - Low density lipoprotein increased [Recovering/Resolving]

NARRATIVE: CASE EVENT DATE: 20250101
